FAERS Safety Report 5264298-2 (Version None)
Quarter: 2007Q1

REPORT INFORMATION
  Report Type: 
  Country: None (occurrence: None)
  Receive Date: 20070309
  Receipt Date: 20070228
  Transmission Date: 20070707
  Serious: Yes (Disabling)
  Sender: FDA-Public Use
  Company Number: CIP07000374

PATIENT
  Age: 73 Year
  Sex: Female

DRUGS (9)
  1. ACTONEL [Suspect]
     Dosage: 35 MG, ORAL
     Route: 048
     Dates: start: 20061219, end: 20070107
  2. SOLPRIN /00002701/ (ACETYLSALICYLIC ACID) [Concomitant]
  3. VASCORD (VERAPAMIL HYDROCHLORIDE) [Concomitant]
  4. TILADE [Concomitant]
  5. SEREVENT (SALMETEROL XINAOFATE) [Concomitant]
  6. ATACAND /01349502/ (CANDESARTAN CILEXETIL) [Concomitant]
  7. CARDIZEM /00489701/ (DILTIAZEM) [Concomitant]
  8. FISH OIL (FISH OIL) [Concomitant]
  9. CALTRATE /00108001/ (CALCIUM CARBONATE) [Concomitant]

REACTIONS (2)
  - GLAUCOMA [None]
  - RETINAL VEIN THROMBOSIS [None]
